FAERS Safety Report 9949696 (Version 1)
Quarter: 2014Q1

REPORT INFORMATION
  Report Type: Report from Study
  Country: US (occurrence: US)
  Receive Date: 20140304
  Receipt Date: 20140304
  Transmission Date: 20141002
  Serious: No
  Sender: FDA-Public Use
  Company Number: US-ABBVIE-13P-163-1069318-00

PATIENT
  Age: 62 Year
  Sex: Female

DRUGS (15)
  1. HUMIRA [Suspect]
     Indication: CROHN^S DISEASE
     Dates: start: 20110315
  2. HUMIRA [Suspect]
     Dates: start: 2013
  3. HUMIRA [Suspect]
  4. METFORMIN [Concomitant]
     Indication: DIABETES MELLITUS
     Route: 048
  5. CLONAZEPAM [Concomitant]
     Indication: DEPRESSION
     Route: 048
  6. CLONAZEPAM [Concomitant]
     Indication: ANXIETY
  7. BENAZEPRIL [Concomitant]
     Indication: BLOOD PRESSURE
     Route: 048
  8. PREVASTATIN [Concomitant]
     Indication: BLOOD CHOLESTEROL INCREASED
     Route: 048
  9. ASPIRIN [Concomitant]
     Indication: PRODUCT USED FOR UNKNOWN INDICATION
     Dosage: DAILY
     Route: 048
  10. SERTRALINE [Concomitant]
     Indication: PRODUCT USED FOR UNKNOWN INDICATION
  11. ESCITALOPRAM [Concomitant]
     Indication: PRODUCT USED FOR UNKNOWN INDICATION
     Dosage: 20 MG EVERY DAY
  12. METOPROLOL ER [Concomitant]
     Indication: HYPERTENSION
     Dosage: 100 MG DAILY
  13. CLONIDINE [Concomitant]
     Indication: HYPERTENSION
  14. CLONIDINE [Concomitant]
  15. GLYBURIDE [Concomitant]
     Indication: DIABETES MELLITUS

REACTIONS (1)
  - Feeling hot [Not Recovered/Not Resolved]
